FAERS Safety Report 6689682-1 (Version None)
Quarter: 2010Q2

REPORT INFORMATION
  Report Type: 
  Country: None (occurrence: None)
  Receive Date: 20100421
  Receipt Date: 20100406
  Transmission Date: 20101027
  Serious: No
  Sender: FDA-Public Use
  Company Number: GB-BAYER-201019906GPV

PATIENT
  Age: 38 Year
  Sex: Female

DRUGS (1)
  1. BETAFERON [Suspect]
     Indication: BETA INTERFERON THERAPY
     Route: 058
     Dates: start: 20020911

REACTIONS (1)
  - INJECTION SITE ATROPHY [None]
